FAERS Safety Report 5107344-9 (Version None)
Quarter: 2006Q3

REPORT INFORMATION
  Report Type: 
  Country: None (occurrence: None)
  Receive Date: 20060914
  Receipt Date: 20060901
  Transmission Date: 20061208
  Serious: Yes (Other)
  Sender: FDA-Public Use
  Company Number: 2006109322

PATIENT
  Age: 42 Year
  Sex: Female
  Weight: 77.1115 kg

DRUGS (2)
  1. CELEBREX [Suspect]
     Indication: DRUG USE FOR UNKNOWN INDICATION
     Dosage: 400 MG (200 MG, 2 IN 1 D)
  2. BEXTRA [Suspect]
     Indication: DRUG USE FOR UNKNOWN INDICATION
     Dosage: 40 MG (20 MG, 2 IN 1 D)

REACTIONS (2)
  - CARDIAC VALVE DISEASE [None]
  - CHEST PAIN [None]
